FAERS Safety Report 6761088-6 (Version None)
Quarter: 2010Q2

REPORT INFORMATION
  Report Type: 
  Country: None (occurrence: None)
  Receive Date: 20100608
  Receipt Date: 20100603
  Transmission Date: 20101027
  Serious: Yes (Other)
  Sender: FDA-Public Use
  Company Number: FR-EISAI INC.-E3810-03818-SPO-FR

PATIENT
  Sex: Female
  Weight: 68 kg

DRUGS (4)
  1. PARIET (RABEPRAZOLE) [Suspect]
     Route: 048
  2. CIPROFIBRATE [Concomitant]
     Route: 048
  3. CELIPROLOL [Concomitant]
     Route: 065
  4. GAVISCON [Concomitant]
     Route: 065

REACTIONS (2)
  - BREAST SWELLING [None]
  - CHEST PAIN [None]
